FAERS Safety Report 10254775 (Version 1)
Quarter: 2014Q2

REPORT INFORMATION
  Report Type: Spontaneous
  Country: US (occurrence: None)
  Receive Date: 20140620
  Receipt Date: 20140620
  Transmission Date: 20141212
  Serious: Yes (Other)
  Sender: FDA-Public Use
  Company Number: None

PATIENT
  Age: 86 Year
  Sex: Female
  Weight: 95.26 kg

DRUGS (3)
  1. ATORVASTATIN [Suspect]
     Indication: CEREBROVASCULAR ACCIDENT PROPHYLAXIS
     Dosage: 1 PILL ONCE DAILY TAKEN BY MOUTH
     Route: 048
     Dates: start: 20140417, end: 20140613
  2. ATORVASTATIN [Suspect]
     Indication: ISCHAEMIC HEART DISEASE PROPHYLAXIS
     Dosage: 1 PILL ONCE DAILY TAKEN BY MOUTH
     Route: 048
     Dates: start: 20140417, end: 20140613
  3. ATORVASTATIN [Suspect]
     Dosage: 1 PILL ONCE DAILY TAKEN BY MOUTH
     Route: 048
     Dates: start: 20140417, end: 20140613

REACTIONS (16)
  - Confusional state [None]
  - Arthralgia [None]
  - Condition aggravated [None]
  - Myalgia [None]
  - Asthenia [None]
  - Tremor [None]
  - Muscular weakness [None]
  - Gait disturbance [None]
  - Urinary incontinence [None]
  - Nocturia [None]
  - Insomnia [None]
  - Dry eye [None]
  - No therapeutic response [None]
  - Fatigue [None]
  - Asthenia [None]
  - Balance disorder [None]
